FAERS Safety Report 18434064 (Version 2)
Quarter: 2020Q4

REPORT INFORMATION
  Report Type: Spontaneous
  Country: BR (occurrence: BR)
  Receive Date: 20201028
  Receipt Date: 20201202
  Transmission Date: 20210114
  Serious: Yes (Other)
  Sender: FDA-Public Use
  Company Number: BR-AMGEN-BRASP2019070531

PATIENT
  Age: 57 Year
  Sex: Female

DRUGS (3)
  1. ENBREL [Suspect]
     Active Substance: ETANERCEPT
     Dosage: UNK
     Route: 065
  2. ENBREL [Suspect]
     Active Substance: ETANERCEPT
     Dosage: UNK
     Route: 065
     Dates: start: 2015, end: 201903
  3. ENBREL [Suspect]
     Active Substance: ETANERCEPT
     Indication: PRODUCT USED FOR UNKNOWN INDICATION
     Dosage: UNK
     Route: 065
     Dates: start: 2012

REACTIONS (9)
  - Expired product administered [Unknown]
  - Gait inability [Unknown]
  - Cervical vertebral fracture [Unknown]
  - Neck pain [Unknown]
  - Peripheral swelling [Unknown]
  - Pain [Unknown]
  - Pain in extremity [Unknown]
  - Limb injury [Unknown]
  - Spinal column injury [Unknown]

NARRATIVE: CASE EVENT DATE: 201902
